FAERS Safety Report 5265806-8 (Version None)
Quarter: 2007Q1

REPORT INFORMATION
  Report Type: 
  Country: None (occurrence: None)
  Receive Date: 20061213
  Receipt Date: 20041123
  Transmission Date: 20070707
  Serious: Yes (Other)
  Sender: FDA-Public Use
  Company Number: 2004UW24218

PATIENT
  Age: 44 Year
  Sex: Female
  Weight: 76.203 kg

DRUGS (5)
  1. IRESSA [Suspect]
     Indication: NON-SMALL CELL LUNG CANCER
  2. ATROVENT [Concomitant]
  3. ALBUTEROL [Concomitant]
  4. VALIUM [Concomitant]
  5. TYLENOL W/ CODEINE NO. 3 [Concomitant]

REACTIONS (2)
  - COUGH [None]
  - DRY SKIN [None]
